FAERS Safety Report 25876392 (Version 2)
Quarter: 2025Q4

REPORT INFORMATION
  Report Type: Report from Study
  Country: US (occurrence: US)
  Receive Date: 20251003
  Receipt Date: 20251010
  Transmission Date: 20260117
  Serious: Yes (Hospitalization, Other)
  Sender: MALLINCKRODT
  Company Number: US-MALLINCKRODT-MNK202505944

PATIENT
  Age: 64 Year
  Sex: Female

DRUGS (4)
  1. CORTICOTROPIN [Suspect]
     Active Substance: CORTICOTROPIN
     Indication: Sarcoidosis
     Dosage: 40 UNITS
     Route: 058
  2. PREDNISONE [Concomitant]
     Active Substance: PREDNISONE
     Dosage: UNKNOWN
  3. ALBUTEROL SULFATE [Concomitant]
     Active Substance: ALBUTEROL SULFATE
     Dosage: UNKNOWN
  4. BREZTRI AEROSPHERE [BUDESONIDE;FORMOTEROL FUMARATE;GLYCOPYRRONIUM BROM [Concomitant]
     Dosage: UNKNOWN

REACTIONS (13)
  - Illness [Unknown]
  - Condition aggravated [Unknown]
  - Blindness transient [Unknown]
  - Tremor [Unknown]
  - Dysphonia [Unknown]
  - Confusional state [Unknown]
  - Thinking abnormal [Unknown]
  - Back pain [Unknown]
  - Tongue biting [Unknown]
  - Lip injury [Unknown]
  - Repetitive speech [Unknown]
  - Decreased appetite [Unknown]
  - Asthenia [Not Recovered/Not Resolved]

NARRATIVE: CASE EVENT DATE: 20250101
